FAERS Safety Report 4708729-2 (Version None)
Quarter: 2005Q2

REPORT INFORMATION
  Report Type: 
  Country: None (occurrence: None)
  Receive Date: 20050629
  Receipt Date: 20050504
  Transmission Date: 20051028
  Serious: No
  Sender: FDA-Public Use
  Company Number: 05P-163-0299782-00

PATIENT
  Age: 55 Year
  Sex: Female
  Weight: 79.3795 kg

DRUGS (12)
  1. HUMIRA [Suspect]
     Indication: RHEUMATOID ARTHRITIS
     Dosage: 40 MG, 1 IN 2 WK, SUBCUTANEOUS
     Route: 058
     Dates: start: 20040818
  2. CALCIUM WITH VITAMIN D [Concomitant]
  3. ISOM-AP-DICHL [Concomitant]
  4. CYCLOBENZAPRINE HCL [Concomitant]
  5. FLUOXETINE HCL [Concomitant]
  6. PNEUMONIA VACCINE [Concomitant]
  7. HYDROCODONE BITARTRATE [Concomitant]
  8. SALBUTAMOL [Concomitant]
  9. METHOTREXATE [Concomitant]
  10. CELECOXIB [Concomitant]
  11. ESOMEPRAZOLE [Concomitant]
  12. TRAMADOL HCL [Concomitant]

REACTIONS (2)
  - NASAL SINUS DRAINAGE [None]
  - PRODUCTIVE COUGH [None]
